FAERS Safety Report 4428517-4 (Version None)
Quarter: 2004Q3

REPORT INFORMATION
  Report Type: 
  Country: None (occurrence: None)
  Receive Date: 20040818
  Receipt Date: 20040728
  Transmission Date: 20050211
  Serious: Yes (Hospitalization)
  Sender: FDA-Public Use
  Company Number: GB-BRISTOL-MYERS SQUIBB COMPANY-12653382

PATIENT
  Age: 58 Year
  Sex: Male

DRUGS (6)
  1. WARFARIN SODIUM [Suspect]
     Indication: ATRIAL FIBRILLATION
     Route: 048
     Dates: end: 20040619
  2. CLOPIDROGREL BISULFATE [Suspect]
     Indication: ATRIAL FIBRILLATION
     Route: 048
     Dates: end: 20040619
  3. AMIODARONE HCL [Concomitant]
     Indication: ATRIAL FIBRILLATION
     Route: 048
  4. BISOPROLOL FUMARATE [Concomitant]
     Indication: ATRIAL FIBRILLATION
     Route: 048
  5. RAMIPRIL [Concomitant]
     Route: 048
  6. PRAVASTATIN [Concomitant]
     Route: 048

REACTIONS (2)
  - CIRCULATORY COLLAPSE [None]
  - GASTRIC ULCER HAEMORRHAGE [None]
